FAERS Safety Report 18908152 (Version 3)
Quarter: 2021Q2

REPORT INFORMATION
  Report Type: Spontaneous
  Country: DE (occurrence: DE)
  Receive Date: 20210218
  Receipt Date: 20210419
  Transmission Date: 20210717
  Serious: Yes (Other)
  Sender: FDA-Public Use
  Company Number: DE-ASTRAZENECA-2021A060976

PATIENT
  Age: 47 Year
  Sex: Female

DRUGS (2)
  1. ASCOTOP [Suspect]
     Active Substance: ZOLMITRIPTAN
     Indication: MIGRAINE
     Dosage: UNK, ONCE ONCE/SINGLE ADMINISTRATION
     Route: 045
     Dates: start: 2020, end: 2020
  2. EUTHYROX [Concomitant]
     Active Substance: LEVOTHYROXINE SODIUM
     Indication: PRODUCT USED FOR UNKNOWN INDICATION
     Dosage: 100 MICROGRAMS PER INHALATION, DAILY
     Route: 065

REACTIONS (1)
  - Aphasia [Recovered/Resolved]
